FAERS Safety Report 6682516-0 (Version None)
Quarter: 2010Q2

REPORT INFORMATION
  Report Type: 
  Country: None (occurrence: None)
  Receive Date: 20100414
  Receipt Date: 20100414
  Transmission Date: 20101027
  Serious: No
  Sender: FDA-Public Use
  Company Number: None

PATIENT
  Age: 59 Year
  Sex: Male
  Weight: 91 kg

DRUGS (2)
  1. WARFARIN SODIUM [Suspect]
     Indication: CARDIOVASCULAR DISORDER
     Dosage: 7.5 MG PM PO
     Route: 048
     Dates: start: 20100211
  2. WARFARIN SODIUM [Suspect]
     Indication: SURGERY
     Dosage: 7.5 MG PM PO
     Route: 048
     Dates: start: 20100211

REACTIONS (2)
  - DIARRHOEA [None]
  - INTERNATIONAL NORMALISED RATIO ABNORMAL [None]
